FAERS Safety Report 5215800-8 (Version None)
Quarter: 2007Q1

REPORT INFORMATION
  Report Type: 
  Country: None (occurrence: None)
  Receive Date: 20070118
  Receipt Date: 20070108
  Transmission Date: 20070707
  Serious: Yes (Other)
  Sender: FDA-Public Use
  Company Number: S06-USA-01948-01

PATIENT
  Age: 45 Year
  Sex: Female

DRUGS (3)
  1. THYROID TAB [Suspect]
     Indication: WEIGHT DECREASED
     Dosage: 60 MG QD PO
     Route: 048
     Dates: start: 20000101
  2. THYROID TAB [Suspect]
     Indication: WEIGHT DECREASED
     Dosage: 90 MG QD PO
     Route: 048
  3. THYROID TAB [Suspect]
     Indication: WEIGHT DECREASED
     Dosage: 60 MG QD PO
     Route: 048

REACTIONS (2)
  - BASEDOW'S DISEASE [None]
  - OVERDOSE [None]
